FAERS Safety Report 7180472-2 (Version None)
Quarter: 2010Q4

REPORT INFORMATION
  Report Type: 
  Country: None (occurrence: None)
  Receive Date: 20101221
  Receipt Date: 20101216
  Transmission Date: 20110411
  Serious: Yes (Hospitalization)
  Sender: FDA-Public Use
  Company Number: CHPA2010US19174

PATIENT
  Age: 54 Year
  Sex: Female
  Weight: 90.703 kg

DRUGS (1)
  1. CONTROL PLP (NCH) [Suspect]
     Indication: TOBACCO USER
     Dosage: 21 MG, QD
     Route: 062
     Dates: start: 20100501, end: 20100501

REACTIONS (2)
  - DRUG INEFFECTIVE FOR UNAPPROVED INDICATION [None]
  - GALLBLADDER OPERATION [None]
